FAERS Safety Report 21618455 (Version 1)
Quarter: 2022Q4

REPORT INFORMATION
  Report Type: Spontaneous
  Country: US (occurrence: US)
  Receive Date: 20221119
  Receipt Date: 20221119
  Transmission Date: 20230112
  Serious: No
  Sender: FDA-Public Use
  Company Number: US-002147023-NVSC2022US259988

PATIENT
  Age: 30 Year
  Sex: Female

DRUGS (2)
  1. ADAKVEO [Suspect]
     Active Substance: CRIZANLIZUMAB-TMCA
     Indication: Sickle cell anaemia with crisis
     Dosage: 5 MG, Q2W, ONCE EVERY TWO WEEKS
     Route: 042
     Dates: start: 20221101, end: 20221101
  2. ADAKVEO [Suspect]
     Active Substance: CRIZANLIZUMAB-TMCA
     Dosage: 5 MG, Q2W, ONCE EVERY TWO WEEKS
     Route: 042
     Dates: start: 20221115, end: 20221115

REACTIONS (5)
  - Infusion related reaction [Unknown]
  - Pain [Unknown]
  - Gait inability [Unknown]
  - Dysstasia [Unknown]
  - Pain in extremity [Not Recovered/Not Resolved]

NARRATIVE: CASE EVENT DATE: 20221115
